FAERS Safety Report 16363670 (Version 10)
Quarter: 2021Q1

REPORT INFORMATION
  Report Type: Report from Study
  Country: DE (occurrence: DE)
  Receive Date: 20190528
  Receipt Date: 20210212
  Transmission Date: 20210419
  Serious: Yes (Death, Life-Threatening)
  Sender: FDA-Public Use
  Company Number: PHHO2019DE005398

PATIENT
  Age: 62 Year
  Sex: Male
  Weight: 71.4 kg

DRUGS (35)
  1. TAZOBAC [Concomitant]
     Active Substance: PIPERACILLIN SODIUM\TAZOBACTAM SODIUM
     Indication: PYREXIA
  2. METAMIZOLE [Concomitant]
     Active Substance: METAMIZOLE
     Indication: COLITIS
  3. FUROSEMID [Concomitant]
     Active Substance: FUROSEMIDE
     Indication: OEDEMA
  4. METRONIDAZOL [Concomitant]
     Active Substance: METRONIDAZOLE
     Indication: FEBRILE NEUTROPENIA
  5. PANTOPRAZOL [Concomitant]
     Active Substance: PANTOPRAZOLE SODIUM
     Indication: GASTRITIS
  6. MIDOSTAURIN [Suspect]
     Active Substance: MIDOSTAURIN
     Indication: ACUTE MYELOID LEUKAEMIA
     Dosage: 50 MG, BID
     Route: 048
     Dates: start: 20190508, end: 20190520
  7. MORPHIN [Concomitant]
     Active Substance: MORPHINE
     Indication: DYSPNOEA
     Dosage: UNK
     Route: 065
     Dates: start: 20190521
  8. FENTANYL. [Concomitant]
     Active Substance: FENTANYL
     Indication: DYSPNOEA
     Dosage: UNK
     Route: 065
     Dates: start: 20190521
  9. MEROPENEM. [Concomitant]
     Active Substance: MEROPENEM
     Indication: ANTIBIOTIC THERAPY
  10. METRONIDAZOL [Concomitant]
     Active Substance: METRONIDAZOLE
     Indication: ANTIBIOTIC THERAPY
     Dosage: 500 MG, TID
     Route: 065
     Dates: start: 20190514
  11. FILGRASTIM [Concomitant]
     Active Substance: FILGRASTIM
     Indication: NEUTROPENIA
     Dosage: 480 UG, QD
     Route: 065
     Dates: start: 20190513
  12. ORTOTON [Concomitant]
     Indication: MUSCULOSKELETAL PAIN
     Dosage: 750 MG, QD
     Route: 048
  13. IDARUBICIN [Suspect]
     Active Substance: IDARUBICIN
     Indication: ACUTE MYELOID LEUKAEMIA
     Dosage: 12 MG/M2, QD
     Route: 042
     Dates: start: 20190430
  14. ETOMIDATE. [Concomitant]
     Active Substance: ETOMIDATE
     Indication: DYSPNOEA
     Dosage: UNK
     Route: 065
     Dates: start: 20190521
  15. ELECTROLYTE [Concomitant]
     Active Substance: UNSPECIFIED INGREDIENT
     Indication: HYPOKALAEMIA
     Dosage: UNK
     Route: 065
     Dates: start: 20190515, end: 20190517
  16. KEVATRIL [Concomitant]
     Active Substance: GRANISETRON HYDROCHLORIDE
     Indication: ANTIEMETIC SUPPORTIVE CARE
     Dosage: 1 MG, QD
     Route: 048
  17. CYTARABINE. [Suspect]
     Active Substance: CYTARABINE
     Indication: ACUTE MYELOID LEUKAEMIA
     Dosage: 200 MG/M2, CONT
     Route: 042
     Dates: start: 20190430
  18. TAZOBAC [Concomitant]
     Active Substance: PIPERACILLIN SODIUM\TAZOBACTAM SODIUM
     Indication: ANTIBIOTIC THERAPY
     Dosage: UNK
     Route: 065
     Dates: start: 20190511, end: 20190514
  19. METAMIZOLE [Concomitant]
     Active Substance: METAMIZOLE
     Indication: ABDOMINAL PAIN
     Dosage: UNK
     Route: 065
     Dates: start: 20190515
  20. GRANISETRON [Concomitant]
     Active Substance: GRANISETRON
     Indication: NAUSEA
  21. NOXAFIL [Concomitant]
     Active Substance: POSACONAZOLE
     Indication: PROPHYLAXIS
     Dosage: UNK
     Route: 065
     Dates: start: 20190430
  22. FUROSEMID [Concomitant]
     Active Substance: FUROSEMIDE
     Indication: DIURETIC THERAPY
     Dosage: UNK
     Route: 042
     Dates: start: 20190430, end: 20190511
  23. SUFENTANIL [Concomitant]
     Active Substance: SUFENTANIL
     Indication: DYSPNOEA
     Dosage: UNK
     Route: 065
     Dates: start: 20190521
  24. PANTOPRAZOL [Concomitant]
     Active Substance: PANTOPRAZOLE SODIUM
     Indication: PROPHYLAXIS
     Dosage: UNK
     Route: 065
     Dates: start: 20190430
  25. MIDAZOLAM. [Concomitant]
     Active Substance: MIDAZOLAM
     Indication: DYSPNOEA
     Dosage: UNK
     Route: 065
     Dates: start: 20190521
  26. MEROPENEM. [Concomitant]
     Active Substance: MEROPENEM
     Indication: ACUTE MYELOID LEUKAEMIA
  27. NATRIUMPICOSULFAT [Concomitant]
     Active Substance: SODIUM PICOSULFATE
     Indication: CONSTIPATION
     Dosage: UNK
     Route: 065
     Dates: start: 20190506, end: 20190513
  28. TANNOLACT [Concomitant]
     Active Substance: CRESOL\UREA
     Indication: FOLLICULITIS
     Dosage: UNK
     Route: 065
     Dates: start: 20190516
  29. MEROPENEM. [Concomitant]
     Active Substance: MEROPENEM
     Indication: FEBRILE NEUTROPENIA
     Dosage: UNK
     Route: 065
     Dates: start: 20190514
  30. MERONEM [Concomitant]
     Active Substance: MEROPENEM
     Indication: SEPSIS
     Dosage: UNK
     Route: 065
     Dates: start: 20190514
  31. STEROFUNDIN [Concomitant]
     Active Substance: CALCIUM CHLORIDE\MAGNESIUM CHLORIDE\POTASSIUM CHLORIDE\SODIUM ACETATE\SODIUM CHLORIDE
     Indication: SUPPLEMENTATION THERAPY
     Dosage: 1000 ML, QD
     Route: 065
     Dates: start: 20190430
  32. ACICLOVIR [Concomitant]
     Active Substance: ACYCLOVIR
     Indication: PROPHYLAXIS
  33. TAZOBAC [Concomitant]
     Active Substance: PIPERACILLIN SODIUM\TAZOBACTAM SODIUM
     Indication: SEPSIS
  34. ACICLOVIR [Concomitant]
     Active Substance: ACYCLOVIR
     Indication: ANTIVIRAL PROPHYLAXIS
     Dosage: UNK
     Route: 065
     Dates: start: 20190430
  35. GRANISETRON [Concomitant]
     Active Substance: GRANISETRON
     Indication: ANTIBIOTIC THERAPY
     Dosage: UNK
     Route: 065
     Dates: start: 20190509

REACTIONS (1)
  - Pulmonary haemorrhage [Fatal]

NARRATIVE: CASE EVENT DATE: 20190521
